FAERS Safety Report 8219715-2 (Version None)
Quarter: 2012Q1

REPORT INFORMATION
  Report Type: 
  Country: None (occurrence: None)
  Receive Date: 20120319
  Receipt Date: 20120309
  Transmission Date: 20120608
  Serious: Yes (Other)
  Sender: FDA-Public Use
  Company Number: US-ASTRAZENECA-2012SE15691

PATIENT
  Sex: Female
  Weight: 72.6 kg

DRUGS (6)
  1. SEROQUEL [Suspect]
     Indication: BIPOLAR I DISORDER
     Dosage: 600 MG IN MORNING, 600 MG IN EARLY AFTERNOON, 600 MG IN THE EVENING AND 1200 MG AT BEDTIME
     Route: 048
  2. LEVOTHYROXINE SODIUM [Concomitant]
     Indication: HYPOTHYROIDISM
  3. ZOLOFT [Concomitant]
     Indication: DEPRESSION
  4. OTC ACID CONTROLLER [Concomitant]
  5. XANAX [Concomitant]
     Indication: ANXIETY
  6. TOPAMAX [Concomitant]
     Indication: CONVULSION

REACTIONS (9)
  - THERAPEUTIC RESPONSE UNEXPECTED [None]
  - INCORRECT DOSE ADMINISTERED [None]
  - DRUG DOSE OMISSION [None]
  - WEIGHT INCREASED [None]
  - CONVULSION [None]
  - FEELING ABNORMAL [None]
  - HUNGER [None]
  - FATIGUE [None]
  - SUICIDAL IDEATION [None]
